FAERS Safety Report 4369718-3 (Version None)
Quarter: 2004Q2

REPORT INFORMATION
  Report Type: 
  Country: None (occurrence: None)
  Receive Date: 20040528
  Receipt Date: 20040519
  Transmission Date: 20050107
  Serious: Yes (Hospitalization)
  Sender: FDA-Public Use
  Company Number: HQWYE067821MAY04

PATIENT
  Age: 29 Year
  Sex: Male
  Weight: 68.1 kg

DRUGS (2)
  1. EFFEXOR XR [Suspect]
     Indication: DEPRESSION
     Dosage: 300 MG 1X PER 1 DAY; ORAL
     Route: 048
     Dates: start: 19970801, end: 20040427
  2. EFFEXOR XR [Suspect]
     Dosage: 100 MG SAMPLES; ORAL
     Route: 048
     Dates: start: 20040512

REACTIONS (4)
  - CONFUSIONAL STATE [None]
  - COORDINATION ABNORMAL [None]
  - DRUG WITHDRAWAL SYNDROME [None]
  - MANIA [None]
